FAERS Safety Report 6933438-9 (Version None)
Quarter: 2010Q3

REPORT INFORMATION
  Report Type: 
  Country: None (occurrence: None)
  Receive Date: 20100820
  Receipt Date: 20100809
  Transmission Date: 20110219
  Serious: Yes (Other)
  Sender: FDA-Public Use
  Company Number: JP-JNJFOC-20100109494

PATIENT
  Age: 27 Year
  Sex: Male
  Weight: 66 kg

DRUGS (10)
  1. REMICADE [Suspect]
     Indication: CROHN'S DISEASE
     Route: 042
  2. REMICADE [Suspect]
     Route: 042
  3. REMICADE [Suspect]
     Route: 042
  4. REMICADE [Suspect]
     Route: 042
  5. REMICADE [Suspect]
     Route: 042
  6. REMICADE [Suspect]
     Route: 042
  7. PENTASA [Concomitant]
     Indication: CROHN'S DISEASE
     Route: 048
  8. ANTIHISTAMINES [Concomitant]
     Indication: PREMEDICATION
  9. ACETAMINOPHEN [Concomitant]
     Indication: PREMEDICATION
  10. STEROIDS NOS [Concomitant]
     Indication: PREMEDICATION

REACTIONS (1)
  - PULMONARY TUBERCULOSIS [None]
